FAERS Safety Report 5601214-5 (Version None)
Quarter: 2008Q1

REPORT INFORMATION
  Report Type: 
  Country: None (occurrence: None)
  Receive Date: 20080118
  Receipt Date: 20080108
  Transmission Date: 20080703
  Serious: Yes (Life-Threatening, Other)
  Sender: FDA-Public Use
  Company Number: 2007-04178

PATIENT
  Age: 62 Year
  Sex: Male
  Weight: 83 kg

DRUGS (1)
  1. VELCADE [Suspect]
     Indication: MULTIPLE MYELOMA
     Dosage: 1.30 MG/KG, INTRAVENOUS : 1.00 MG/M2 INTRAVENOUS
     Route: 042
     Dates: start: 20071206

REACTIONS (3)
  - BRONCHIAL HAEMORRHAGE [None]
  - CARDIAC FAILURE [None]
  - CARDIOMEGALY [None]
